FAERS Safety Report 9013889 (Version 2)
Quarter: 2013Q1

REPORT INFORMATION
  Report Type: Spontaneous
  Country: US (occurrence: US)
  Receive Date: 20130115
  Receipt Date: 20130208
  Transmission Date: 20140127
  Serious: Yes (Death)
  Sender: FDA-Public Use
  Company Number: US-UCBSA-074883

PATIENT
  Age: 64 Year
  Sex: Female

DRUGS (12)
  1. TUSSIONEX [Suspect]
     Indication: BRONCHITIS
     Dosage: 5 CC
     Route: 048
     Dates: start: 20130104, end: 201301
  2. ATENOLOL [Concomitant]
     Indication: TACHYARRHYTHMIA
  3. SIMVASTATIN [Concomitant]
     Indication: BLOOD CHOLESTEROL
  4. ALLEGRA [Concomitant]
     Indication: HYPERSENSITIVITY
     Dosage: 180 MG
  5. SINGULAIR [Concomitant]
     Indication: ASTHMA
     Route: 048
  6. EDECRINE [Concomitant]
     Indication: VENOUS INSUFFICIENCY
     Route: 048
  7. EDECRINE [Concomitant]
     Indication: LYMPHOEDEMA
     Route: 048
  8. QVAR [Concomitant]
     Dosage: INHALATION UP TO 2 PUFFS DAILY
     Route: 055
  9. COMBIVENT [Concomitant]
     Indication: WHEEZING
     Dosage: INHALER Q 6-8 HOURS PRN NEBULIZER
     Route: 055
  10. COMBIVENT [Concomitant]
     Indication: LUNG DISORDER
     Dosage: INHALER Q 6-8 HOURS PRN NEBULIZER
     Route: 055
  11. BABY ASPIRIN [Concomitant]
     Indication: CARDIAC DISORDER
     Route: 048
  12. EPI-PEN [Concomitant]

REACTIONS (3)
  - Acute pulmonary oedema [Fatal]
  - Cardio-respiratory arrest [Fatal]
  - Myocardial infarction [Not Recovered/Not Resolved]
